FAERS Safety Report 21984917 (Version 1)
Quarter: 2023Q1

REPORT INFORMATION
  Report Type: Spontaneous
  Country: CA (occurrence: CA)
  Receive Date: 20230213
  Receipt Date: 20230213
  Transmission Date: 20230418
  Serious: Yes (Other)
  Sender: FDA-Public Use
  Company Number: CA-002147023-NVSC2023CA027771

PATIENT
  Age: 64 Year
  Sex: Female

DRUGS (7)
  1. PIPERACILLIN AND TAZOBACTAM [Suspect]
     Active Substance: PIPERACILLIN SODIUM\TAZOBACTAM SODIUM
     Indication: Pseudomonas infection
     Dosage: 4.5 G
     Route: 042
  2. CIPROFLOXACIN [Suspect]
     Active Substance: CIPROFLOXACIN
     Indication: Pseudomonas infection
     Dosage: 400 MG, TID (3 EVERY 1 DAYS)
     Route: 042
  3. CIPROFLOXACIN [Suspect]
     Active Substance: CIPROFLOXACIN
     Indication: Cellulitis
  4. CIPROFLOXACIN [Suspect]
     Active Substance: CIPROFLOXACIN
     Indication: Bacteraemia
  5. CEPHALEXIN [Suspect]
     Active Substance: CEPHALEXIN
     Indication: Pseudomonas infection
     Dosage: UNK
     Route: 048
  6. CEPHALEXIN [Suspect]
     Active Substance: CEPHALEXIN
     Indication: Cellulitis
  7. CEPHALEXIN [Suspect]
     Active Substance: CEPHALEXIN
     Indication: Bacteraemia

REACTIONS (1)
  - Pathogen resistance [Unknown]
